FAERS Safety Report 6451647-2 (Version None)
Quarter: 2009Q4

REPORT INFORMATION
  Report Type: 
  Country: None (occurrence: None)
  Receive Date: 20091118
  Receipt Date: 20090527
  Transmission Date: 20100525
  Serious: Yes (Other)
  Sender: FDA-Public Use
  Company Number: 2007BI002649

PATIENT
  Age: 52 Year
  Sex: Male

DRUGS (5)
  1. TYSABRI [Suspect]
     Indication: MULTIPLE SCLEROSIS
     Dosage: 300 MG;QM;IV
     Route: 042
     Dates: start: 20050211, end: 20070202
  2. DITROPAN [Concomitant]
  3. BACLOFEN [Concomitant]
  4. ACIPHEX [Concomitant]
  5. OMACOR [Concomitant]

REACTIONS (4)
  - ANAPHYLACTIC REACTION [None]
  - HYPERSENSITIVITY [None]
  - HYPERTENSION [None]
  - INFUSION RELATED REACTION [None]
